FAERS Safety Report 10583888 (Version 1)
Quarter: 2014Q4

REPORT INFORMATION
  Report Type: Spontaneous
  Country: IT (occurrence: None)
  Receive Date: 20141112
  Receipt Date: 20141112
  Transmission Date: 20150529
  Serious: Yes (Hospitalization, Other)
  Sender: FDA-Public Use
  Company Number: IT-ZYDUS-005330

PATIENT
  Age: 78 Year
  Sex: Female

DRUGS (2)
  1. METFORMIN [Suspect]
     Active Substance: METFORMIN HYDROCHLORIDE
     Indication: TYPE 2 DIABETES MELLITUS
     Dosage: 2000.00-MG-1.0DAYS
     Route: 048
  2. GLIBENCLAMIDE (GLIBENCLAMIDE) [Suspect]
     Active Substance: GLYBURIDE
     Indication: TYPE 2 DIABETES MELLITUS
     Dosage: 12.50-MG-1.00DAYS
     Route: 048

REACTIONS (6)
  - Interstitial lung disease [None]
  - Dyspnoea at rest [None]
  - Asthma [None]
  - Atrial fibrillation [None]
  - Alveolar lung disease [None]
  - Pyrexia [None]
